FAERS Safety Report 9917402 (Version 2)
Quarter: 2014Q1

REPORT INFORMATION
  Report Type: Spontaneous
  Country: US (occurrence: US)
  Receive Date: 20140221
  Receipt Date: 20140314
  Transmission Date: 20141002
  Serious: No
  Sender: FDA-Public Use
  Company Number: US-PFIZER INC-2014047292

PATIENT
  Age: 71 Year
  Sex: Male

DRUGS (3)
  1. SUTENT [Suspect]
     Indication: METASTATIC RENAL CELL CARCINOMA
     Dosage: 50 MG, DAILY
     Dates: start: 201308
  2. LORTAB [Suspect]
     Dosage: 5MG/325 MG
  3. ZOMETA [Concomitant]
     Indication: BONE DISORDER
     Dosage: UNK

REACTIONS (12)
  - Dysgeusia [Unknown]
  - Decreased appetite [Unknown]
  - Weight decreased [Unknown]
  - Nausea [Unknown]
  - Musculoskeletal pain [Unknown]
  - Arthralgia [Unknown]
  - Oral pain [Recovering/Resolving]
  - Glossodynia [Unknown]
  - Fatigue [Unknown]
  - Mobility decreased [Unknown]
  - Tongue disorder [Unknown]
  - Sedation [Unknown]
